FAERS Safety Report 19644208 (Version 1)
Quarter: 2021Q3

REPORT INFORMATION
  Report Type: Other
  Country: CN (occurrence: CN)
  Receive Date: 20210801
  Receipt Date: 20210801
  Transmission Date: 20211014
  Serious: Yes (Hospitalization, Other)
  Sender: FDA-Public Use
  Company Number: CN-DEXPHARM-20211180

PATIENT
  Age: 18 Year
  Sex: Male

DRUGS (2)
  1. VENLAFAXINE SUSTAINED?RELEASE TABLETS [Suspect]
     Active Substance: VENLAFAXINE HYDROCHLORIDE
     Dosage: VENLAFAXINE SUSTAINED?RELEASE TABLETS (75 MG)
  2. VALPROATE [Interacting]
     Active Substance: VALPROIC ACID
     Dosage: MAGNESIUM VALPROATE SUSTAINED? RELEASE TABLETS (0.25 G)

REACTIONS (2)
  - Drug interaction [Recovered/Resolved]
  - Serotonin syndrome [Recovered/Resolved]
